FAERS Safety Report 21757915 (Version 1)
Quarter: 2022Q4

REPORT INFORMATION
  Report Type: Spontaneous
  Country: US (occurrence: None)
  Receive Date: 20221221
  Receipt Date: 20221221
  Transmission Date: 20230113
  Serious: Yes (Hospitalization)
  Sender: FDA-Public Use
  Company Number: US-ROCHE-3205152

PATIENT
  Sex: Female
  Weight: 90.7 kg

DRUGS (4)
  1. ACTIVASE [Suspect]
     Active Substance: ALTEPLASE
     Indication: Cerebrovascular accident
     Dosage: ONGOING: NO
     Route: 040
     Dates: start: 20221014
  2. ACTIVASE [Suspect]
     Active Substance: ALTEPLASE
     Dosage: NO
     Route: 042
     Dates: start: 20221014
  3. AMLODIPINE [Concomitant]
     Active Substance: AMLODIPINE BESYLATE
     Indication: Blood pressure measurement
     Dosage: YES
     Route: 048
  4. LOSARTAN [Concomitant]
     Active Substance: LOSARTAN
     Indication: Blood pressure measurement
     Route: 048

REACTIONS (2)
  - Haemorrhagic transformation stroke [Not Recovered/Not Resolved]
  - Off label use [Unknown]

NARRATIVE: CASE EVENT DATE: 20221014
